FAERS Safety Report 24360811 (Version 1)
Quarter: 2024Q3

REPORT INFORMATION
  Report Type: Spontaneous
  Country: NL (occurrence: NL)
  Receive Date: 20240925
  Receipt Date: 20240925
  Transmission Date: 20241016
  Serious: Yes (Other)
  Sender: TEVA
  Company Number: None

PATIENT
  Age: 72 Year
  Sex: Female
  Weight: 98.5 kg

DRUGS (20)
  1. BUPRENORPHINE [Suspect]
     Active Substance: BUPRENORPHINE
     Indication: Arthralgia
     Dosage: 1X/WEEK, CONTINUOUS: PLASTER 10UG/HOUR / BRAND NAME NOT SPECIFIED
     Route: 065
     Dates: start: 20240829
  2. ACETAMINOPHEN [Concomitant]
     Active Substance: ACETAMINOPHEN
     Indication: Product used for unknown indication
     Dosage: BRAND NAME NOT SPECIFIED
     Route: 065
  3. COSMETICS [Concomitant]
     Active Substance: COSMETICS
     Indication: Product used for unknown indication
     Dosage: ZALF: CETOMACROGOL ZALF / BRAND NAME NOT SPECIFIED
     Route: 065
  4. DESLORATADINE [Concomitant]
     Active Substance: DESLORATADINE
     Indication: Product used for unknown indication
     Dosage: BRAND NAME NOT SPECIFIED
     Route: 065
  5. TRIAMCINOLONE ACETONIDE [Concomitant]
     Active Substance: TRIAMCINOLONE ACETONIDE
     Indication: Product used for unknown indication
     Dosage: DOSAGE: 1 MG/G ZALF, TRIAMCINOLONACETONIDE ZALF/ BRAND NAME NOT SPECIFIED
     Route: 065
  6. DULOXETINE [Concomitant]
     Active Substance: DULOXETINE
     Indication: Product used for unknown indication
     Dosage: BRAND NAME NOT SPECIFIED
     Route: 065
  7. VESICARE [Concomitant]
     Active Substance: SOLIFENACIN SUCCINATE
     Indication: Product used for unknown indication
     Dosage: SOLIFENACINE / VESICARE TABLET FILM COVER
     Route: 065
  8. LEVOTHYROXINE [Concomitant]
     Active Substance: LEVOTHYROXINE\LEVOTHYROXINE SODIUM
     Indication: Product used for unknown indication
     Dosage: LEVOTHYROXINE 25UG (ACID) / THYRAX DUOTAB 0.025MG
     Route: 065
  9. KEPPRA [Concomitant]
     Active Substance: LEVETIRACETAM
     Indication: Product used for unknown indication
     Dosage: LEVETIRACETAM / KEPPRA TABLET FILM COVER
     Route: 065
  10. SIMVASTATIN [Concomitant]
     Active Substance: SIMVASTATIN
     Indication: Product used for unknown indication
     Dosage: BRAND NAME NOT SPECIFIED
     Route: 065
  11. CARBIDOPA AND LEVODOPA [Concomitant]
     Active Substance: CARBIDOPA\LEVODOPA
     Indication: Product used for unknown indication
     Dosage: 100/25 MG (MILLIGRAM):100/25MG / BRAND NAME NOT SPECIFIED
     Route: 065
  12. ESOMEPRAZOLE [Concomitant]
     Active Substance: ESOMEPRAZOLE
     Indication: Product used for unknown indication
     Dosage: BRAND NAME NOT SPECIFIED
     Route: 065
  13. VOLTAREN [Concomitant]
     Active Substance: DICLOFENAC SODIUM
     Indication: Product used for unknown indication
     Dosage: DICLOFENAC/ VOLTAREN EMULGEL EXTRA STRONG 23.2MG/G
     Route: 065
  14. MOMETASONE FUROATE [Concomitant]
     Active Substance: MOMETASONE FUROATE
     Indication: Product used for unknown indication
     Dosage: DOSAGE: 1 MG/G MOMETASON ZALF/ BRAND NAME NOT SPECIFIED
     Route: 065
  15. EZETIMIBE [Concomitant]
     Active Substance: EZETIMIBE
     Indication: Product used for unknown indication
     Dosage: BRAND NAME NOT SPECIFIED
     Route: 065
  16. CHOLECALCIFEROL [Concomitant]
     Active Substance: CHOLECALCIFEROL
     Indication: Product used for unknown indication
     Dosage: 50,000 IE/ML (UNITS PER MILLILITER): COLECALCIFEROL DRINK 50,000IU/ML / BRAND NAME NOT SPECIFIED
     Route: 065
  17. MIDAZOLAM [Concomitant]
     Active Substance: MIDAZOLAM
     Indication: Product used for unknown indication
     Dosage: 2.5 MG/DOSE (MILLIGRAM PER DOSE): NOSE SPRAY 2.5MG/DO (HCL) / BRAND NAME NOT SPECIFIED
     Route: 065
  18. XARELTO [Concomitant]
     Active Substance: RIVAROXABAN
     Indication: Product used for unknown indication
     Dosage: RIVAROXABAN / XARELTO TABLET FILM COVER 20MG
     Route: 065
  19. MOVICOLON [Concomitant]
     Active Substance: POLYETHYLENE GLYCOL 3350\POTASSIUM CHLORIDE\SODIUM BICARBONATE\SODIUM CHLORIDE
     Indication: Product used for unknown indication
     Dosage: POWDER FOR ORAL SOLUTION: MACROGOL/SALTS PDR V DRINK (MOVIC/MOLAX/GEN CITR) / MOVICOLON POWDER FO...
     Route: 065
  20. MICROLAX [Concomitant]
     Indication: Product used for unknown indication
     Dosage: 9/625 MG/ML (MILLIGRAMS PER MILLILITER): SODIUM LAURYLSULFOACET/SORBITOL ENEMA 9/625MG/ML / MICRO...
     Route: 065

REACTIONS (1)
  - Hallucination [Recovering/Resolving]
